FAERS Safety Report 8831109 (Version 2)
Quarter: 2013Q2

REPORT INFORMATION
  Report Type: Spontaneous
  Country: TW (occurrence: TW)
  Receive Date: 20121009
  Receipt Date: 20130418
  Transmission Date: 20140414
  Serious: Yes (Other)
  Sender: FDA-Public Use
  Company Number: PHHY2012TW085977

PATIENT
  Age: 44 Year
  Sex: Male

DRUGS (2)
  1. DEXAMETHASONE [Suspect]
     Dosage: 40 MG, PER DAY
  2. THALIDOMIDE [Suspect]
     Dosage: 100 MG, PER DAY

REACTIONS (3)
  - Tumour lysis syndrome [Recovered/Resolved]
  - Hyperkalaemia [Recovered/Resolved]
  - Insomnia [Unknown]
